FAERS Safety Report 5152964-9 (Version None)
Quarter: 2006Q4

REPORT INFORMATION
  Report Type: 
  Country: None (occurrence: None)
  Receive Date: 20061117
  Receipt Date: 20061106
  Transmission Date: 20070319
  Serious: Yes (Life-Threatening, Disabling, Other)
  Sender: FDA-Public Use
  Company Number: DE-ELI_LILLY_AND_COMPANY-DE200611001003

PATIENT
  Age: 79 Year
  Sex: Female
  Weight: 65.5 kg

DRUGS (3)
  1. FORTEO [Suspect]
     Indication: OSTEOPOROSIS
     Dates: end: 20060516
  2. CALCIMAGON-D3 /SCH/ [Concomitant]
     Indication: OSTEOPOROSIS
     Dosage: UNK, 2/D
     Route: 048
  3. THIAMAZOLE [Concomitant]
     Indication: HYPERTHYROIDISM
     Dosage: 5 MG, EACH MORNING
     Route: 048

REACTIONS (3)
  - ARRHYTHMIA [None]
  - CEREBROVASCULAR ACCIDENT [None]
  - RENAL CELL CARCINOMA STAGE UNSPECIFIED [None]
